FAERS Safety Report 7365741-5 (Version None)
Quarter: 2011Q1

REPORT INFORMATION
  Report Type: 
  Country: None (occurrence: None)
  Receive Date: 20110322
  Receipt Date: 20110318
  Transmission Date: 20110831
  Serious: No
  Sender: FDA-Public Use
  Company Number: US-PFIZER INC-2011060539

PATIENT
  Sex: Male
  Weight: 95.238 kg

DRUGS (6)
  1. ADVIL CONGESTION RELIEF [Suspect]
     Indication: NASAL CONGESTION
  2. ADVIL CONGESTION RELIEF [Suspect]
     Indication: RHINORRHOEA
  3. LISINOPRIL [Concomitant]
     Indication: HYPERTENSION
     Dosage: UNK
  4. ADVIL CONGESTION RELIEF [Suspect]
     Indication: HEADACHE
  5. ADVIL CONGESTION RELIEF [Suspect]
     Indication: SINUSITIS
     Dosage: UNK
     Route: 048
     Dates: start: 20110315, end: 20110318
  6. ADVIL CONGESTION RELIEF [Suspect]

REACTIONS (5)
  - RHINORRHOEA [None]
  - HEADACHE [None]
  - SINUS HEADACHE [None]
  - NASAL CONGESTION [None]
  - DRUG INEFFECTIVE [None]
